FAERS Safety Report 6495862-0 (Version None)
Quarter: 2009Q4

REPORT INFORMATION
  Report Type: 
  Country: None (occurrence: None)
  Receive Date: 20091214
  Receipt Date: 20090820
  Transmission Date: 20100525
  Serious: No
  Sender: FDA-Public Use
  Company Number: US-BRISTOL-MYERS SQUIBB COMPANY-14749642

PATIENT
  Sex: Female

DRUGS (3)
  1. ABILIFY [Suspect]
     Indication: BIPOLAR DISORDER
     Dosage: STARTED WITH 1MG.
  2. ABILIFY [Suspect]
     Indication: INJURY
     Dosage: STARTED WITH 1MG.
  3. DEPAKOTE [Concomitant]

REACTIONS (1)
  - AKATHISIA [None]
